FAERS Safety Report 19667022 (Version 8)
Quarter: 2023Q2

REPORT INFORMATION
  Report Type: Report from Study
  Country: US (occurrence: US)
  Receive Date: 20210806
  Receipt Date: 20230607
  Transmission Date: 20230721
  Serious: Yes (Hospitalization, Other)
  Sender: FDA-Public Use
  Company Number: US-SHIRE-US202000684

PATIENT
  Age: 50 Year
  Sex: Female

DRUGS (1)
  1. HUMAN IMMUNOGLOBULIN G [Suspect]
     Active Substance: HUMAN IMMUNOGLOBULIN G
     Indication: Primary immunodeficiency syndrome
     Dosage: 30 GRAM, MONTHLY
     Route: 042

REACTIONS (16)
  - COVID-19 [Recovering/Resolving]
  - Sjogren^s syndrome [Unknown]
  - Product availability issue [Unknown]
  - Pyrexia [Recovered/Resolved]
  - Viral infection [Unknown]
  - Skin exfoliation [Unknown]
  - Post-acute COVID-19 syndrome [Unknown]
  - Laryngitis [Unknown]
  - Gait inability [Unknown]
  - Vitamin D decreased [Unknown]
  - Gastrointestinal disorder [Unknown]
  - Nervous system disorder [Unknown]
  - Inflammation [Unknown]
  - Arthralgia [Unknown]
  - Fatigue [Unknown]
  - Nausea [Unknown]

NARRATIVE: CASE EVENT DATE: 20200205
